FAERS Safety Report 18232039 (Version 1)
Quarter: 2020Q3

REPORT INFORMATION
  Report Type: Spontaneous
  Country: DE (occurrence: DE)
  Receive Date: 20200904
  Receipt Date: 20200904
  Transmission Date: 20201103
  Serious: Yes (Death, Hospitalization, Other)
  Sender: FDA-Public Use
  Company Number: DE-BRISTOL-MYERS SQUIBB COMPANY-BMS-2020-035505

PATIENT
  Age: 87 Year
  Sex: Male

DRUGS (12)
  1. VANCOMYCIN EBERTH [Concomitant]
     Dosage: 125 MILLIGRAM, BID
     Route: 065
     Dates: end: 20200317
  2. CLOPIDOGREL BISULFATE. [Suspect]
     Active Substance: CLOPIDOGREL BISULFATE
     Indication: ACUTE CORONARY SYNDROME
     Dosage: 75 MILLIGRAM, QD
     Route: 048
     Dates: start: 20200123, end: 20200424
  3. PANTOPRAZOLE SODIUM. [Concomitant]
     Active Substance: PANTOPRAZOLE SODIUM
     Indication: PRODUCT USED FOR UNKNOWN INDICATION
     Dosage: 40 MILLIGRAM, QD
     Route: 048
  4. CANDESARTAN 1A PHARMA [Concomitant]
     Active Substance: CANDESARTAN CILEXETIL
     Dosage: 10 MILLIGRAM, QD
     Route: 065
     Dates: start: 20200420
  5. CLOPIDOGREL BISULFATE. [Suspect]
     Active Substance: CLOPIDOGREL BISULFATE
     Indication: ACUTE MYOCARDIAL INFARCTION
  6. ALDACTONE [Concomitant]
     Active Substance: SPIRONOLACTONE
     Indication: PRODUCT USED FOR UNKNOWN INDICATION
     Dosage: 25 MILLIGRAM, QD
     Route: 065
  7. VANCOMYCIN EBERTH [Concomitant]
     Indication: PRODUCT USED FOR UNKNOWN INDICATION
     Dosage: 125 MILLIGRAM, QID
     Route: 065
     Dates: start: 20200303, end: 20200310
  8. METOPROLOLSUCCINAT 1 A PHARMA [Concomitant]
     Active Substance: METOPROLOL SUCCINATE
     Indication: PRODUCT USED FOR UNKNOWN INDICATION
     Dosage: 0.5 DOSAGE FORM, BID
     Route: 048
     Dates: start: 20200421
  9. CANDESARTAN 1A PHARMA [Concomitant]
     Active Substance: CANDESARTAN CILEXETIL
     Indication: PRODUCT USED FOR UNKNOWN INDICATION
     Dosage: 10 MILLIGRAM, BID
     Route: 065
  10. ELIQUIS [Suspect]
     Active Substance: APIXABAN
     Indication: ACUTE CORONARY SYNDROME
     Dosage: 0.5 TAB, BID
     Route: 048
     Dates: start: 20200123, end: 20200424
  11. ELIQUIS [Suspect]
     Active Substance: APIXABAN
     Indication: CEREBROVASCULAR ACCIDENT PROPHYLAXIS
  12. TAMSULOSIN RATIOPHARM [Concomitant]
     Indication: PRODUCT USED FOR UNKNOWN INDICATION
     Dosage: 0.4 MILLIGRAM, QD
     Route: 065

REACTIONS (5)
  - Diverticulum intestinal haemorrhagic [Fatal]
  - Acute myocardial infarction [Fatal]
  - Diverticulum intestinal [Unknown]
  - Off label use [Unknown]
  - Atrial fibrillation [Fatal]
